FAERS Safety Report 20546804 (Version 1)
Quarter: 2022Q1

REPORT INFORMATION
  Report Type: Report from Study
  Country: CA (occurrence: CA)
  Receive Date: 20220303
  Receipt Date: 20220303
  Transmission Date: 20220424
  Serious: Yes (Hospitalization, Other)
  Sender: FDA-Public Use
  Company Number: CA-GILEAD-2022-0570604

PATIENT
  Age: 66 Year
  Sex: Female

DRUGS (31)
  1. SOFOSBUVIR\VELPATASVIR [Suspect]
     Active Substance: SOFOSBUVIR\VELPATASVIR
     Indication: Hepatitis C
     Dosage: 1 DOSAGE FORM (400/100 MG)
     Route: 065
     Dates: start: 20180919, end: 20181212
  2. ALENDRONATE [Concomitant]
     Active Substance: ALENDRONATE SODIUM
  3. THYMOCYTE IMMUNE GLOBULIN NOS [Concomitant]
     Active Substance: THYMOCYTE IMMUNE GLOBULIN NOS
  4. ATORVASTATIN [Concomitant]
     Active Substance: ATORVASTATIN
  5. CALCIUM CARBONATE [Concomitant]
     Active Substance: CALCIUM CARBONATE
  6. CEFAZOLIN [Concomitant]
     Active Substance: CEFAZOLIN
  7. CODEINE [Concomitant]
     Active Substance: CODEINE
  8. CYCLOSPORINE [Concomitant]
     Active Substance: CYCLOSPORINE
  9. DOCUSATE SODIUM [Concomitant]
     Active Substance: DOCUSATE SODIUM
  10. EMPAGLIFLOZIN [Concomitant]
     Active Substance: EMPAGLIFLOZIN
  11. ESBRIET [Concomitant]
     Active Substance: PIRFENIDONE
  12. EZETIMIBE [Concomitant]
     Active Substance: EZETIMIBE
  13. FERROUS GLUCONATE [Concomitant]
     Active Substance: FERROUS GLUCONATE
  14. FUROSEMIDE [Concomitant]
     Active Substance: FUROSEMIDE
  15. GABAPENTIN [Concomitant]
     Active Substance: GABAPENTIN
  16. HUMALOG [Concomitant]
     Active Substance: INSULIN LISPRO
  17. HUMULINE [Concomitant]
  18. HYDROMORPHONE [Concomitant]
     Active Substance: HYDROMORPHONE
  19. KEFLEX [Concomitant]
     Active Substance: CEPHALEXIN
  20. LOSARTAN [Concomitant]
     Active Substance: LOSARTAN
  21. MAGNESIUM OXIDE [Concomitant]
     Active Substance: MAGNESIUM OXIDE
  22. METFORMIN [Concomitant]
     Active Substance: METFORMIN HYDROCHLORIDE
  23. MYFORTIC [Concomitant]
     Active Substance: MYCOPHENOLATE SODIUM
  24. NYSTATIN [Concomitant]
     Active Substance: NYSTATIN
  25. OXYGEN [Concomitant]
     Active Substance: OXYGEN
  26. PANTOPRAZOLE [Concomitant]
     Active Substance: PANTOPRAZOLE
  27. PREDNISONE [Concomitant]
     Active Substance: PREDNISONE
  28. SENNA LEAF [Concomitant]
     Active Substance: SENNA LEAF
  29. SEPTRA [Concomitant]
     Active Substance: SULFAMETHOXAZOLE\TRIMETHOPRIM
  30. VALGANCICLOVIR [Concomitant]
     Active Substance: VALGANCICLOVIR
  31. VITAMIN D NOS [Concomitant]
     Active Substance: VITAMIN D NOS

REACTIONS (2)
  - Transplant rejection [Unknown]
  - Diabetes mellitus [Unknown]

NARRATIVE: CASE EVENT DATE: 20180926
